FAERS Safety Report 8025994-7 (Version None)
Quarter: 2012Q1

REPORT INFORMATION
  Report Type: 
  Country: None (occurrence: None)
  Receive Date: 20120105
  Receipt Date: 20110928
  Transmission Date: 20120608
  Serious: No
  Sender: FDA-Public Use
  Company Number: US-ABBOTT-11P-163-0861070-00

PATIENT
  Sex: Female

DRUGS (4)
  1. SYNTHROID [Suspect]
     Indication: AUTOIMMUNE THYROIDITIS
     Dosage: TAKING OFF AND ON SINCE ABOUT 1981
  2. SYNTHROID [Suspect]
     Indication: HYPOTHYROIDISM
     Route: 048
  3. SYNTHROID [Suspect]
     Indication: AUTOIMMUNE THYROIDITIS
  4. SYNTHROID [Suspect]
     Indication: HYPOTHYROIDISM
     Route: 048
     Dates: start: 20110701

REACTIONS (5)
  - ANAEMIA [None]
  - AUTOIMMUNE THYROIDITIS [None]
  - TEMPOROMANDIBULAR JOINT SYNDROME [None]
  - THYROID FUNCTION TEST ABNORMAL [None]
  - COELIAC DISEASE [None]
